FAERS Safety Report 4629657-7 (Version None)
Quarter: 2005Q2

REPORT INFORMATION
  Report Type: 
  Country: None (occurrence: None)
  Receive Date: 20050406
  Receipt Date: 20050318
  Transmission Date: 20051028
  Serious: Yes (Death, Hospitalization)
  Sender: FDA-Public Use
  Company Number: JP_050205792

PATIENT
  Age: 55 Year
  Weight: 42 kg

DRUGS (13)
  1. GEMZAR [Suspect]
     Indication: PANCREATIC CARCINOMA
     Dosage: 1000 MG/M2 OTHER
     Route: 050
     Dates: start: 20020419, end: 20021015
  2. THALIDOMIDE (THALIDOMIDE PHARMION) [Concomitant]
  3. CELECOXIB [Concomitant]
  4. ALENDRONATE SODIUM [Concomitant]
  5. GASCON (DIMETICONE) [Concomitant]
  6. POLYCARBOPHIL CALCIUM [Concomitant]
  7. BIOLACTIS (LACTOBACILLUS CASEI) [Concomitant]
  8. NEO NICHIPHAGEN C [Concomitant]
  9. ADELAVIN (FLAVINE ADENINE DINUCLEOTIDE) [Concomitant]
  10. AGIFUTOL S (GLUTATHIONE) [Concomitant]
  11. ORGAN LYSATE, STANDARDIZED [Concomitant]
  12. ATP  /INO/(ADENOSINE TRIPHOSPHATE, DISODIUM SALT) [Concomitant]
  13. ANPEC (MORPHINE HYDROCHLORIDE) [Concomitant]

REACTIONS (4)
  - BRONCHITIS [None]
  - DEEP VEIN THROMBOSIS [None]
  - INSOMNIA [None]
  - MALIGNANT NEOPLASM PROGRESSION [None]
